FAERS Safety Report 5680056-9 (Version None)
Quarter: 2008Q1

REPORT INFORMATION
  Report Type: 
  Country: None (occurrence: None)
  Receive Date: 20080325
  Receipt Date: 20080325
  Transmission Date: 20080703
  Serious: Yes (Other)
  Sender: FDA-Public Use
  Company Number: None

PATIENT
  Age: 53 Year
  Sex: Female
  Weight: 68.0396 kg

DRUGS (1)
  1. CHANTIX [Suspect]
     Indication: SMOKING CESSATION THERAPY
     Dosage: 1MG 2X DAILY PO
     Route: 048
     Dates: start: 20070715, end: 20071011

REACTIONS (17)
  - ABNORMAL DREAMS [None]
  - ANGER [None]
  - ARTHRALGIA [None]
  - BALANCE DISORDER [None]
  - CONFUSIONAL STATE [None]
  - DISTURBANCE IN ATTENTION [None]
  - DIZZINESS [None]
  - DRUG INEFFECTIVE [None]
  - HEADACHE [None]
  - IMPAIRED DRIVING ABILITY [None]
  - IMPAIRED WORK ABILITY [None]
  - MEMORY IMPAIRMENT [None]
  - MENOPAUSE [None]
  - POST-TRAUMATIC PAIN [None]
  - STRESS [None]
  - URINARY TRACT DISORDER [None]
  - WEIGHT INCREASED [None]
